FAERS Safety Report 22051963 (Version 1)
Quarter: 2023Q1

REPORT INFORMATION
  Report Type: Spontaneous
  Country: IT (occurrence: None)
  Receive Date: 20230302
  Receipt Date: 20230302
  Transmission Date: 20230418
  Serious: Yes (Other)
  Sender: FDA-Public Use
  Company Number: None

PATIENT
  Age: 68 Year
  Sex: Male
  Weight: 81 kg

DRUGS (2)
  1. GEMCITABINE [Suspect]
     Active Substance: GEMCITABINE
     Indication: Lung neoplasm malignant
     Route: 042
     Dates: start: 20220518, end: 20220608
  2. CISPLATIN [Suspect]
     Active Substance: CISPLATIN
     Indication: Lung neoplasm malignant
     Route: 042
     Dates: start: 20220518, end: 20220608

REACTIONS (4)
  - Musculoskeletal pain [Recovering/Resolving]
  - Gastrointestinal haemorrhage [Recovering/Resolving]
  - Asthenia [Recovering/Resolving]
  - Neutropenia [Not Recovered/Not Resolved]

NARRATIVE: CASE EVENT DATE: 20220524
